FAERS Safety Report 17587914 (Version 1)
Quarter: 2020Q1

REPORT INFORMATION
  Report Type: Spontaneous
  Country: US (occurrence: US)
  Receive Date: 20200327
  Receipt Date: 20200327
  Transmission Date: 20200409
  Serious: No
  Sender: FDA-Public Use
  Company Number: US-TEVA-2020-US-1212275

PATIENT

DRUGS (3)
  1. PROTONIX [Concomitant]
     Active Substance: PANTOPRAZOLE SODIUM
  2. CELEBREX [Concomitant]
     Active Substance: CELECOXIB
  3. CARTIA XT [Suspect]
     Active Substance: DILTIAZEM HYDROCHLORIDE
     Route: 065

REACTIONS (2)
  - Cough [Unknown]
  - Dysphonia [Unknown]
